FAERS Safety Report 5393731-0 (Version None)
Quarter: 2007Q3

REPORT INFORMATION
  Report Type: 
  Country: None (occurrence: None)
  Receive Date: 20070719
  Receipt Date: 20070719
  Transmission Date: 20080115
  Serious: Yes (Hospitalization)
  Sender: FDA-Public Use
  Company Number: None

PATIENT
  Age: 73 Year
  Sex: Male

DRUGS (3)
  1. AMIODARONE HCL [Suspect]
     Indication: ARRHYTHMIA
     Dosage: 200MG BID PO
     Route: 048
     Dates: start: 20070501, end: 20070708
  2. AMIODARONE HCL [Suspect]
     Indication: HYPERTENSION
     Dosage: 200MG BID PO
     Route: 048
     Dates: start: 20070501, end: 20070708
  3. METOPROLOL SUCCINATE [Suspect]
     Dosage: 12.5MG EVERY DAY PO
     Route: 048
     Dates: start: 19950613, end: 20070708

REACTIONS (2)
  - ATRIOVENTRICULAR BLOCK [None]
  - BRADYCARDIA [None]
